FAERS Safety Report 8773862 (Version 2)
Quarter: 2012Q4

REPORT INFORMATION
  Report Type: 
  Country: US (occurrence: US)
  Receive Date: 20120907
  Receipt Date: 20121126
  Transmission Date: 20130627
  Serious: Yes (Life-Threatening, Hospitalization, Disabling)
  Sender: FDA-Public Use
  Company Number: US-BAYER-2012-092228

PATIENT
  Age: 18 Year
  Sex: Female
  Weight: 102.49 kg

DRUGS (9)
  1. YAZ [Suspect]
     Indication: UTERINE BLEEDING
  2. YASMIN [Suspect]
  3. OCELLA [Suspect]
  4. ABILIFY [Concomitant]
     Dosage: 5 mg, OM
  5. AMBIEN [Concomitant]
     Dosage: 10 mg, HS
  6. PREVACID [Concomitant]
     Indication: GERD
     Dosage: 30 mg, in AM
  7. TOPAMAX [Concomitant]
     Dosage: 50 mg, OM
  8. CONCERTA [Concomitant]
     Dosage: 36 mg, OM
  9. CLARITIN [Concomitant]
     Dosage: 10 mg, OM

REACTIONS (10)
  - Cerebrovascular accident [None]
  - Injury [None]
  - Pain [None]
  - General physical health deterioration [None]
  - Anxiety [None]
  - Anhedonia [None]
  - Emotional distress [None]
  - Pain [None]
  - Cerebrovascular accident [None]
  - Pulmonary embolism [Recovered/Resolved]
